FAERS Safety Report 19788581 (Version 3)
Quarter: 2021Q4

REPORT INFORMATION
  Report Type: Spontaneous
  Country: US (occurrence: US)
  Receive Date: 20210904
  Receipt Date: 20211101
  Transmission Date: 20220303
  Serious: No
  Sender: FDA-Public Use
  Company Number: US-LEADINGPHARMA-US-2021LEASPO00270

PATIENT
  Sex: Male

DRUGS (1)
  1. RECTASMOOTHE [Suspect]
     Active Substance: LIDOCAINE
     Indication: Haemorrhoids
     Route: 065
     Dates: start: 2021

REACTIONS (2)
  - Anorectal discomfort [Unknown]
  - Drug ineffective [Unknown]

NARRATIVE: CASE EVENT DATE: 20210101
